FAERS Safety Report 23037181 (Version 1)
Quarter: 2023Q4

REPORT INFORMATION
  Report Type: Spontaneous
  Country: DE (occurrence: DE)
  Receive Date: 20231006
  Receipt Date: 20231006
  Transmission Date: 20240110
  Serious: No
  Sender: FDA-Public Use
  Company Number: None

PATIENT
  Age: 38 Year
  Sex: Female
  Weight: 65 kg

DRUGS (2)
  1. IBUPROFEN [Interacting]
     Active Substance: IBUPROFEN
     Indication: Ovulation pain
     Dosage: 400 MILLIGRAM, ONCE (TOTAL)
     Route: 065
     Dates: start: 20230530
  2. VERMOX [Interacting]
     Active Substance: MEBENDAZOLE
     Indication: Helminthic infection
     Dosage: 100 MILLIGRAM, QD
     Route: 048
     Dates: start: 20230329, end: 20230530

REACTIONS (13)
  - Physical deconditioning [Recovered/Resolved]
  - Asthenia [Recovered/Resolved]
  - Malaise [Recovered/Resolved]
  - Presyncope [Recovered/Resolved]
  - Fatigue [Recovered/Resolved]
  - Hot flush [Recovered/Resolved]
  - Drug interaction [Unknown]
  - Visual field defect [Recovered/Resolved]
  - Dizziness [Recovered/Resolved]
  - Nausea [Recovered/Resolved]
  - Abdominal pain upper [Recovered/Resolved]
  - Diarrhoea [Recovered/Resolved]
  - Abdominal pain lower [Recovered/Resolved]

NARRATIVE: CASE EVENT DATE: 20230330
